FAERS Safety Report 11296872 (Version 1)
Quarter: 2015Q3

REPORT INFORMATION
  Report Type: Spontaneous
  Country: US (occurrence: US)
  Receive Date: 20150722
  Receipt Date: 20150722
  Transmission Date: 20151125
  Serious: No
  Sender: FDA-Public Use
  Company Number: US-ELI_LILLY_AND_COMPANY-US201010003071

PATIENT
  Sex: Male

DRUGS (5)
  1. HYDROCHLOROTHIAZIDE. [Concomitant]
     Active Substance: HYDROCHLOROTHIAZIDE
  2. EFFIENT [Suspect]
     Active Substance: PRASUGREL HYDROCHLORIDE
     Indication: STENT PLACEMENT
     Dosage: 60 MG, OTHER (ONCE AS LOADING DOSE)
     Route: 065
  3. EFFIENT [Suspect]
     Active Substance: PRASUGREL HYDROCHLORIDE
     Dosage: 10 MG, UNKNOWN
  4. ZOCOR [Concomitant]
     Active Substance: SIMVASTATIN
  5. ASPIRIN. [Concomitant]
     Active Substance: ASPIRIN

REACTIONS (1)
  - Contrast media reaction [Unknown]
